FAERS Safety Report 11069606 (Version 5)
Quarter: 2015Q2

REPORT INFORMATION
  Report Type: Spontaneous
  Country: US (occurrence: US)
  Receive Date: 20150427
  Receipt Date: 20150609
  Transmission Date: 20150821
  Serious: Yes (Hospitalization, Other)
  Sender: FDA-Public Use
  Company Number: US-GLAXOSMITHKLINE-US2015056288

PATIENT
  Age: 77 Year
  Sex: Male

DRUGS (5)
  1. VOTRIENT [Suspect]
     Active Substance: PAZOPANIB HYDROCHLORIDE
     Dosage: 200 MG, U
     Dates: start: 20150421
  2. GLIPIZIDE. [Concomitant]
     Active Substance: GLIPIZIDE
  3. FLOMAX (NOS) [Concomitant]
  4. INSULIN [Concomitant]
     Active Substance: INSULIN NOS
  5. VOTRIENT [Suspect]
     Active Substance: PAZOPANIB HYDROCHLORIDE
     Indication: NEOPLASM MALIGNANT
     Dosage: 800 MG, QD
     Route: 048
     Dates: start: 20150423

REACTIONS (5)
  - Seizure [Unknown]
  - Diarrhoea [Not Recovered/Not Resolved]
  - Dysarthria [Unknown]
  - Sluggishness [Not Recovered/Not Resolved]
  - Insomnia [Unknown]

NARRATIVE: CASE EVENT DATE: 20150423
